FAERS Safety Report 8346925-6 (Version None)
Quarter: 2012Q2

REPORT INFORMATION
  Report Type: 
  Country: None (occurrence: None)
  Receive Date: 20120509
  Receipt Date: 20120504
  Transmission Date: 20120825
  Serious: Yes (Life-Threatening, Hospitalization, Disabling, Other)
  Sender: FDA-Public Use
  Company Number: GXKR2012DE001638

PATIENT
  Sex: Female
  Weight: 79 kg

DRUGS (1)
  1. METHOTREXATE [Suspect]
     Indication: PSORIASIS
     Dosage: 1 DF, QW
     Route: 048

REACTIONS (8)
  - SPINAL FRACTURE [None]
  - CIRCULATORY COLLAPSE [None]
  - DIABETES MELLITUS [None]
  - HYPOTHYROIDISM [None]
  - FALL [None]
  - CERVICAL VERTEBRAL FRACTURE [None]
  - RIB FRACTURE [None]
  - AMENORRHOEA [None]
